FAERS Safety Report 25312970 (Version 1)
Quarter: 2025Q2

REPORT INFORMATION
  Report Type: Spontaneous
  Country: US (occurrence: None)
  Receive Date: 20250513
  Receipt Date: 20250513
  Transmission Date: 20250717
  Serious: No
  Sender: FDA-CTU
  Company Number: None

PATIENT
  Age: 51 Year
  Sex: Female
  Weight: 93 kg

DRUGS (1)
  1. EPTINEZUMAB-JJMR [Suspect]
     Active Substance: EPTINEZUMAB-JJMR
     Indication: Migraine
     Route: 042
     Dates: start: 20250430, end: 20250430

REACTIONS (9)
  - Anxiety [None]
  - Chills [None]
  - Nasal congestion [None]
  - Ocular hyperaemia [None]
  - Dyspnoea [None]
  - Paraesthesia oral [None]
  - Oral pruritus [None]
  - Infusion related reaction [None]
  - Hypersensitivity [None]

NARRATIVE: CASE EVENT DATE: 20250430
